FAERS Safety Report 4732325-4 (Version None)
Quarter: 2005Q3

REPORT INFORMATION
  Report Type: 
  Country: None (occurrence: None)
  Receive Date: 20050726
  Receipt Date: 20050118
  Transmission Date: 20060218
  Serious: Yes (Hospitalization)
  Sender: FDA-Public Use
  Company Number: 05USA0049

PATIENT
  Age: 70 Year
  Sex: Male

DRUGS (2)
  1. AGGRASTAT [Suspect]
  2. HEPARIN [Suspect]

REACTIONS (3)
  - DRUG INTERACTION [None]
  - DRUG INTERACTION POTENTIATION [None]
  - HAEMORRHAGE [None]
